FAERS Safety Report 11232855 (Version 2)
Quarter: 2016Q1

REPORT INFORMATION
  Report Type: Spontaneous
  Country: US (occurrence: US)
  Receive Date: 20150701
  Receipt Date: 20160120
  Transmission Date: 20160525
  Serious: Yes (Hospitalization, Other)
  Sender: FDA-Public Use
  Company Number: US-DSJP-DSU-2015-120136

PATIENT

DRUGS (2)
  1. BENICAR [Suspect]
     Active Substance: OLMESARTAN MEDOXOMIL
     Dosage: 20 MG, QD
     Dates: start: 2005, end: 2014
  2. BENICAR [Suspect]
     Active Substance: OLMESARTAN MEDOXOMIL
     Indication: HYPERTENSION
     Dosage: UNK
     Route: 048
     Dates: start: 2004

REACTIONS (14)
  - Impaired gastric emptying [Unknown]
  - Oesophageal stenosis [Unknown]
  - Diverticulitis [Not Recovered/Not Resolved]
  - Polyp [Unknown]
  - Haemorrhoids [Unknown]
  - Renal failure [Unknown]
  - Hypotension [Recovered/Resolved]
  - Constipation [Unknown]
  - Hiatus hernia [Unknown]
  - Dysphagia [Unknown]
  - Iron deficiency anaemia [Unknown]
  - Gastritis [Unknown]
  - Malabsorption [Unknown]
  - Hepatomegaly [Unknown]

NARRATIVE: CASE EVENT DATE: 2008
